FAERS Safety Report 8831992 (Version 3)
Quarter: 2012Q4

REPORT INFORMATION
  Report Type: 
  Country: DE (occurrence: DE)
  Receive Date: 20121009
  Receipt Date: 20121217
  Transmission Date: 20130627
  Serious: Yes (Hospitalization)
  Sender: FDA-Public Use
  Company Number: DE-CELGENEUS-062-21880-12100021

PATIENT
  Age: 69 Year
  Sex: Male
  Weight: 70 kg

DRUGS (9)
  1. REVLIMID [Suspect]
     Indication: PLASMACYTOMA
     Route: 048
     Dates: start: 2008, end: 201112
  2. REVLIMID [Suspect]
     Route: 048
     Dates: start: 20111207
  3. DEXAMETHASONE [Concomitant]
     Indication: PLASMACYTOMA
     Dosage: 2.8571 Milligram
     Route: 065
     Dates: end: 201203
  4. DEXAMETHASONE [Concomitant]
     Indication: PLASMACYTOMA
  5. ENDOXAN [Concomitant]
     Indication: PLASMACYTOMA
     Route: 065
     Dates: start: 201203
  6. ENDOXAN [Concomitant]
     Indication: MULTIPLE MYELOMA PROGRESSION
  7. ACETYLSALICYLIC ACID [Concomitant]
     Indication: CORONARY HEART DISEASE
     Route: 048
  8. METOPROLOL [Concomitant]
     Indication: CARDIAC ARRHYTHMIA
     Dosage: 23,75mg
     Route: 048
  9. PANTOZOL [Concomitant]
     Indication: PROPHYLAXIS
     Route: 048
     Dates: start: 200207

REACTIONS (1)
  - Oesophageal carcinoma stage 0 [Recovered/Resolved]
